FAERS Safety Report 14077373 (Version 1)
Quarter: 2017Q4

REPORT INFORMATION
  Report Type: Report from Study
  Country: JP (occurrence: JP)
  Receive Date: 20171012
  Receipt Date: 20171012
  Transmission Date: 20180321
  Serious: Yes (Death, Other)
  Sender: FDA-Public Use
  Company Number: JP-TAKEDA-2017TJP019317AA

PATIENT
  Age: 57 Year
  Sex: Female

DRUGS (1)
  1. IXAZOMIB [Suspect]
     Active Substance: IXAZOMIB
     Indication: PLASMA CELL MYELOMA
     Dosage: 3 MG, 1/WEEK
     Route: 048
     Dates: start: 20170818

REACTIONS (4)
  - Intestinal ischaemia [Fatal]
  - Diarrhoea [Recovered/Resolved]
  - Plasma cell myeloma [Fatal]
  - Dehydration [Fatal]

NARRATIVE: CASE EVENT DATE: 201709
